FAERS Safety Report 5122589-X (Version None)
Quarter: 2006Q4

REPORT INFORMATION
  Report Type: 
  Country: None (occurrence: None)
  Receive Date: 20061004
  Receipt Date: 20061004
  Transmission Date: 20070319
  Serious: Yes (Other)
  Sender: FDA-Public Use
  Company Number: None

PATIENT
  Age: 36 Year
  Sex: Female
  Weight: 90.7194 kg

DRUGS (4)
  1. BUPIVACAINE 2ML -BUPIVACAINE HOSPIRA  0.75%IN DEXTROSE  - [Suspect]
     Indication: CAESAREAN SECTION
     Dosage: 15 MG 1 TIME EPIDURAL
     Route: 008
     Dates: start: 20060925, end: 20060925
  2. LIDOCAINE [Concomitant]
  3. DURAMORPH PF [Concomitant]
  4. MORPHINE [Concomitant]

REACTIONS (1)
  - DRUG EFFECT DECREASED [None]
